FAERS Safety Report 14551032 (Version 1)
Quarter: 2018Q1

REPORT INFORMATION
  Report Type: Spontaneous
  Country: US (occurrence: US)
  Receive Date: 20180220
  Receipt Date: 20180220
  Transmission Date: 20180509
  Serious: No
  Sender: FDA-Public Use
  Company Number: US-TEVA-802808ACC

PATIENT
  Age: 68 Year
  Sex: Male

DRUGS (4)
  1. AMPHETAMINE W/DEXTROAMPHETAMINE [Suspect]
     Active Substance: AMPHETAMINE SULFATE\DEXTROAMPHETAMINE
     Dosage: 15 MILLIGRAM DAILY; TAKEN IN THE MORNING
  2. BISOPROLOL W/HYDROCHLOROTHIAZIDE [Interacting]
     Active Substance: BISOPROLOL FUMARATE\HYDROCHLOROTHIAZIDE
     Dosage: 2.5-6.25 MG TABLET PER DAY, CURRENTLY TAKING 2 - 3 HOURS AFTER TAKING ALPHA-BLOCKER
  3. ASPIRIN. [Interacting]
     Active Substance: ASPIRIN
     Dosage: 160 MILLIGRAM DAILY;
  4. TAMSULOSIN HYDROCHLORIDE. [Interacting]
     Active Substance: TAMSULOSIN HYDROCHLORIDE
     Dosage: .4 MILLIGRAM DAILY; TAKEN 30 MINUTES AFTER FIRST MEAL OF THE DAY

REACTIONS (3)
  - Drug interaction [Unknown]
  - Hypertension [Unknown]
  - Hypotension [Unknown]
